FAERS Safety Report 9989122 (Version 2)
Quarter: 2014Q1

REPORT INFORMATION
  Report Type: Report from Study
  Country: US (occurrence: US)
  Receive Date: 20140310
  Receipt Date: 20140310
  Transmission Date: 20141002
  Serious: No
  Sender: FDA-Public Use
  Company Number: US-ABBVIE-13P-163-1049608-00

PATIENT
  Age: 55 Year
  Sex: Female

DRUGS (7)
  1. HUMIRA [Suspect]
     Indication: RHEUMATOID ARTHRITIS
     Dates: start: 2012
  2. HYDROXYCHLOROQUINE [Concomitant]
     Indication: ARTHRITIS
  3. OXYCONTIN [Concomitant]
     Indication: PAIN
     Dosage: AS NEEDED
  4. CYMBALTA [Concomitant]
     Indication: FIBROMYALGIA
  5. CLONAZEPAM [Concomitant]
     Indication: ANXIETY
  6. CLONAZEPAM [Concomitant]
     Indication: TREMOR
  7. CARBIDOPA/LEVODOPA [Concomitant]
     Indication: PAIN IN EXTREMITY
     Dosage: 25/100MG

REACTIONS (10)
  - Dizziness [Not Recovered/Not Resolved]
  - Nausea [Not Recovered/Not Resolved]
  - Injection site pain [Not Recovered/Not Resolved]
  - Injection site erythema [Not Recovered/Not Resolved]
  - Headache [Not Recovered/Not Resolved]
  - Asthenia [Not Recovered/Not Resolved]
  - Dizziness [Unknown]
  - Fall [Unknown]
  - Concussion [Unknown]
  - Pain in extremity [Not Recovered/Not Resolved]
